FAERS Safety Report 6593649-1 (Version None)
Quarter: 2010Q1

REPORT INFORMATION
  Report Type: 
  Country: None (occurrence: None)
  Receive Date: 20100222
  Receipt Date: 20091001
  Transmission Date: 20100710
  Serious: No
  Sender: FDA-Public Use
  Company Number: US-BRISTOL-MYERS SQUIBB COMPANY-14803431

PATIENT
  Age: 54 Year
  Sex: Female
  Weight: 86 kg

DRUGS (4)
  1. ORENCIA [Suspect]
     Indication: RHEUMATOID ARTHRITIS
     Dates: start: 20090601
  2. AMBIEN [Concomitant]
  3. LORATADINE [Concomitant]
  4. RESTASIS [Concomitant]
     Indication: DRY EYE

REACTIONS (2)
  - HAEMORRHOIDS [None]
  - SKIN LESION [None]
